FAERS Safety Report 8529463-7 (Version None)
Quarter: 2012Q3

REPORT INFORMATION
  Report Type: 
  Country: None (occurrence: None)
  Receive Date: 20120723
  Receipt Date: 20120712
  Transmission Date: 20120928
  Serious: Yes (Hospitalization)
  Sender: FDA-Public Use
  Company Number: US-JNJFOC-20120308560

PATIENT
  Sex: Female
  Weight: 81.65 kg

DRUGS (3)
  1. STEROIDS NOS [Concomitant]
     Route: 061
  2. USTEKINUMAB [Suspect]
     Indication: PSORIASIS
     Route: 058
     Dates: start: 20110401
  3. HUMIRA [Concomitant]
     Dates: end: 20120212

REACTIONS (1)
  - HEPATITIS ACUTE [None]
